FAERS Safety Report 7575981-8 (Version None)
Quarter: 2011Q2

REPORT INFORMATION
  Report Type: 
  Country: None (occurrence: None)
  Receive Date: 20110628
  Receipt Date: 20110527
  Transmission Date: 20111010
  Serious: Yes (Other)
  Sender: FDA-Public Use
  Company Number: US-BAYER-201029565NA

PATIENT
  Sex: Female
  Weight: 72.562 kg

DRUGS (8)
  1. TRAMADOL HCL [Concomitant]
     Dosage: 50 MG, UNK
  2. FIORICET [Concomitant]
  3. LEXAPRO [Concomitant]
     Dosage: 10 MG, UNK
  4. RHINOCORT [Concomitant]
     Dosage: 32 ?G, INTRANASAL, UNK
  5. FEXOFENADINE [Concomitant]
     Dosage: 180 MG, UNK
  6. PROMETHAZINE [Concomitant]
     Dosage: 25 MG, UNK
  7. YASMIN [Suspect]
     Indication: CONTRACEPTION
     Dosage: UNK
     Route: 048
  8. ALLEGRA [Concomitant]

REACTIONS (3)
  - BILIARY COLIC [None]
  - CHOLECYSTITIS CHRONIC [None]
  - GALLBLADDER DISORDER [None]
